FAERS Safety Report 5249369-9 (Version None)
Quarter: 2007Q1

REPORT INFORMATION
  Report Type: 
  Country: None (occurrence: None)
  Receive Date: 20070228
  Receipt Date: 20060908
  Transmission Date: 20070707
  Serious: No
  Sender: FDA-Public Use
  Company Number: US-GLAXOSMITHKLINE-A0619578A

PATIENT
  Age: 49 Year
  Sex: Female

DRUGS (4)
  1. VALTREX [Suspect]
     Dosage: 500MG TWICE PER DAY
     Route: 048
     Dates: start: 20060907
  2. CLARINEX [Concomitant]
  3. ZANTAC [Concomitant]
  4. NORATAK [Concomitant]

REACTIONS (1)
  - FATIGUE [None]
